FAERS Safety Report 8621544-2 (Version None)
Quarter: 2012Q3

REPORT INFORMATION
  Report Type: 
  Country: None (occurrence: None)
  Receive Date: 20120824
  Receipt Date: 20120821
  Transmission Date: 20120928
  Serious: Yes (Life-Threatening)
  Sender: FDA-Public Use
  Company Number: CHPA2012US018606

PATIENT
  Age: 64 Year
  Sex: Male

DRUGS (1)
  1. EXCEDRIN EXTRA STRENGTH CAPLETS [Suspect]
     Indication: MIGRAINE
     Dosage: 3 DF, PRN
     Route: 048
     Dates: start: 19820101

REACTIONS (6)
  - COMA [None]
  - DRUG INEFFECTIVE [None]
  - MIGRAINE [None]
  - MYOCARDIAL INFARCTION [None]
  - HEART RATE INCREASED [None]
  - INCORRECT DOSE ADMINISTERED [None]
